FAERS Safety Report 5645002-2 (Version None)
Quarter: 2008Q1

REPORT INFORMATION
  Report Type: 
  Country: None (occurrence: None)
  Receive Date: 20080229
  Receipt Date: 20080221
  Transmission Date: 20080703
  Serious: Yes (Hospitalization, Other)
  Sender: FDA-Public Use
  Company Number: US-ELI_LILLY_AND_COMPANY-US200802001417

PATIENT
  Sex: Female
  Weight: 65.76 kg

DRUGS (9)
  1. BYETTA [Suspect]
     Dosage: 5 UG, 2/D
     Route: 065
     Dates: start: 20051021, end: 20051108
  2. BYETTA [Suspect]
     Dosage: 10 UG, 2/D
     Route: 065
     Dates: start: 20051108, end: 20071225
  3. CRESTOR [Concomitant]
     Dosage: 40 MG, UNKNOWN
     Route: 048
  4. COZAAR [Concomitant]
     Dosage: 50 MG, UNKNOWN
     Route: 048
  5. LEXAPRO [Concomitant]
     Dosage: 20 MG, UNKNOWN
     Route: 048
  6. ASPIRIN [Concomitant]
     Dosage: 81 MG, UNKNOWN
     Route: 048
  7. GLUCOPHAGE [Concomitant]
     Dosage: 1000 MG, 2/D
     Route: 048
  8. NIACIN [Concomitant]
     Dosage: 500 MG, UNKNOWN
     Route: 048
  9. AMARYL [Concomitant]
     Dosage: 4 MG, 2/D
     Route: 065

REACTIONS (3)
  - DIALYSIS [None]
  - PANCREATITIS [None]
  - WEIGHT DECREASED [None]
